FAERS Safety Report 9296619 (Version 2)
Quarter: 2014Q1

REPORT INFORMATION
  Report Type: Report from Study
  Country: US (occurrence: US)
  Receive Date: 20130517
  Receipt Date: 20140207
  Transmission Date: 20141002
  Serious: Yes (Hospitalization)
  Sender: FDA-Public Use
  Company Number: US-ASTRAZENECA-2013SE34505

PATIENT
  Age: 24156 Day
  Sex: Male
  Weight: 142.9 kg

DRUGS (21)
  1. NEXIUM [Suspect]
     Indication: PROPHYLAXIS
     Dosage: ONCE DAILY
     Route: 048
     Dates: start: 20100902, end: 20120113
  2. CELECOXIB/IBUPROFEN/NAPROXEN [Suspect]
     Indication: OSTEOARTHRITIS
     Dosage: THREE TIMES A DAY
     Route: 048
     Dates: start: 20100902, end: 20120113
  3. CELOCOXIB/IBUPROFEN/NAPROXEN CODE NOT BROKEN [Suspect]
     Indication: RHEUMATOID ARTHRITIS
     Dosage: THREE TIMES A DAY
     Route: 048
     Dates: start: 20100902, end: 20120113
  4. LISINOPRIL [Concomitant]
     Indication: HYPERTENSION
     Dates: start: 200407
  5. ASPIRIN [Concomitant]
     Indication: PROPHYLAXIS
     Dates: start: 200407
  6. TRAMADOL [Concomitant]
     Indication: PAIN
     Dates: start: 200702
  7. TRAMADOL [Concomitant]
     Indication: PAIN
     Dates: start: 200702
  8. DIGOXIN [Concomitant]
     Indication: ATRIAL FIBRILLATION
     Dates: start: 200910
  9. TIZANIDINE [Concomitant]
     Indication: BACK PAIN
     Dates: start: 200905
  10. TIZANIDINE [Concomitant]
     Indication: MUSCLE SPASMS
     Dates: start: 200905
  11. CALCIUM CITRATE [Concomitant]
     Indication: VITAMIN SUPPLEMENTATION
     Dates: start: 2009
  12. MULTIVITAMIN [Concomitant]
     Indication: VITAMIN SUPPLEMENTATION
     Dates: start: 2009
  13. VITAMIN C [Concomitant]
     Indication: VITAMIN SUPPLEMENTATION
     Dates: start: 2009
  14. VITAMIN D [Concomitant]
     Indication: VITAMIN SUPPLEMENTATION
     Dates: start: 2009
  15. B COMPLEX [Concomitant]
     Indication: VITAMIN SUPPLEMENTATION
     Dates: start: 2009
  16. GLUCOSAMINE [Concomitant]
     Indication: VITAMIN SUPPLEMENTATION
     Dates: start: 2009
  17. LOVASTATIN [Concomitant]
     Indication: BLOOD CHOLESTEROL INCREASED
     Dates: start: 20101111
  18. LOVASTATIN [Concomitant]
     Indication: DYSLIPIDAEMIA
     Dates: start: 20101111
  19. PERIOSTAT [Concomitant]
     Indication: BACTERIAL INFECTION
     Dates: start: 20101226, end: 201108
  20. PERIOSTAT [Concomitant]
     Indication: BACTERIAL INFECTION
     Dates: start: 20101226, end: 201108
  21. METOPROLOL [Concomitant]
     Indication: HYPERTENSION
     Dates: start: 200503

REACTIONS (1)
  - Angina unstable [Recovered/Resolved]
